FAERS Safety Report 9716263 (Version 1)
Quarter: 2013Q4

REPORT INFORMATION
  Report Type: Spontaneous
  Country: US (occurrence: None)
  Receive Date: 20131126
  Receipt Date: 20131126
  Transmission Date: 20140711
  Serious: Yes (Hospitalization)
  Sender: FDA-Public Use
  Company Number: None

PATIENT
  Age: 83 Year
  Sex: Male
  Weight: 58.1 kg

DRUGS (1)
  1. WARFARIN [Suspect]
     Indication: ATRIAL FIBRILLATION
     Route: 048
     Dates: start: 20131016, end: 20131019

REACTIONS (7)
  - Clostridium difficile colitis [None]
  - Vitamin K deficiency [None]
  - Drug interaction [None]
  - Disseminated intravascular coagulation [None]
  - Infection [None]
  - Gastric haemorrhage [None]
  - International normalised ratio abnormal [None]
